FAERS Safety Report 7814324-9 (Version None)
Quarter: 2011Q4

REPORT INFORMATION
  Report Type: 
  Country: None (occurrence: None)
  Receive Date: 20111014
  Receipt Date: 20111007
  Transmission Date: 20120403
  Serious: Yes (Other)
  Sender: FDA-Public Use
  Company Number: JP-GENZYME-THYM-1002634

PATIENT
  Sex: Female
  Weight: 84 kg

DRUGS (13)
  1. LOXOPROFEN SODIUM [Concomitant]
     Indication: PREMEDICATION
     Dosage: 60 MG, QD
     Dates: start: 20110422, end: 20110422
  2. LOXOPROFEN SODIUM [Concomitant]
     Indication: ANTIPYRESIS
     Dosage: 60 MG, QD
     Dates: start: 20110422, end: 20110423
  3. CLEMASTINE FUMARATE [Concomitant]
     Indication: PREMEDICATION
     Dosage: 1 MG, QD
     Dates: start: 20110422, end: 20110422
  4. THYMOGLOBULIN [Suspect]
     Indication: APLASTIC ANAEMIA
     Dosage: 225 MG, QD
     Route: 042
     Dates: start: 20110422, end: 20110423
  5. CYCLOSPORINE [Concomitant]
     Indication: APLASTIC ANAEMIA
     Dosage: 100 MG, BID
     Dates: start: 20080503
  6. PLATELETS, CONCENTRATED [Concomitant]
     Indication: APLASTIC ANAEMIA
     Dosage: 10 IU, UNK
     Dates: start: 20080104
  7. CARBAZOCHROME SODIUM SULFONATE [Concomitant]
     Indication: PRODUCT USED FOR UNKNOWN INDICATION
     Dosage: 30 MG, TID
     Dates: start: 20071012
  8. FAMOTIDINE [Concomitant]
     Indication: PROPHYLAXIS
     Dosage: 20 MG, BID
     Dates: start: 20071012
  9. RED BLOOD CELLS, CONCENTRATED [Concomitant]
     Indication: APLASTIC ANAEMIA
     Dosage: 2 IU, UNK
     Dates: start: 20080110
  10. SENNOSIDE [Concomitant]
     Indication: CONSTIPATION
     Dosage: 12 MG, BID
     Dates: start: 20071012
  11. CORTICOSTEROIDS [Concomitant]
     Indication: APLASTIC ANAEMIA
     Dosage: UNK
     Dates: start: 20080503
  12. METHYLPREDNISOLONE SODIUM SUCCINATE [Concomitant]
     Indication: PREMEDICATION
     Dosage: 125 MG, QD
     Dates: start: 20110422, end: 20110422
  13. REBAMIPIDE [Concomitant]
     Indication: PRODUCT USED FOR UNKNOWN INDICATION
     Dosage: 100 MG, TID
     Dates: start: 20071012

REACTIONS (9)
  - CHILLS [None]
  - PYREXIA [None]
  - DIZZINESS [None]
  - BLOOD PRESSURE DECREASED [None]
  - HEADACHE [None]
  - ABDOMINAL PAIN UPPER [None]
  - NASAL CONGESTION [None]
  - NAUSEA [None]
  - VOMITING [None]
